FAERS Safety Report 7554871-0 (Version None)
Quarter: 2011Q2

REPORT INFORMATION
  Report Type: 
  Country: None (occurrence: None)
  Receive Date: 20110617
  Receipt Date: 20110616
  Transmission Date: 20111010
  Serious: Yes (Death, Hospitalization)
  Sender: FDA-Public Use
  Company Number: US-BRISTOL-MYERS SQUIBB COMPANY-15823107

PATIENT
  Sex: Female

DRUGS (2)
  1. WARFARIN SODIUM [Suspect]
  2. COUMADIN [Suspect]

REACTIONS (3)
  - INTERNATIONAL NORMALISED RATIO FLUCTUATION [None]
  - DEATH [None]
  - HAEMORRHAGE [None]
